FAERS Safety Report 18345951 (Version 2)
Quarter: 2020Q4

REPORT INFORMATION
  Report Type: Report from Study
  Country: ES (occurrence: ES)
  Receive Date: 20201005
  Receipt Date: 20201029
  Transmission Date: 20210114
  Serious: Yes (Hospitalization, Other)
  Sender: FDA-Public Use
  Company Number: ES-SA-2019SA351264

PATIENT

DRUGS (16)
  1. DEXAMETHASONE. [Suspect]
     Active Substance: DEXAMETHASONE
     Indication: PLASMA CELL MYELOMA
     Dosage: 20 MG, BIW
     Route: 048
     Dates: start: 20191213, end: 20191213
  2. ACICLOVIR [Concomitant]
     Active Substance: ACYCLOVIR
     Indication: PROPHYLAXIS
     Dosage: DOSAGE (TOTAL DAILY DOSE): 800 MG
     Route: 048
     Dates: start: 20190819
  3. HIDROXIL B12 B6 B1 [Concomitant]
     Active Substance: HYDROXOCOBALAMIN\PYRIDOXINE HYDROCHLORIDE\THIAMINE HYDROCHLORIDE
     Indication: PROPHYLAXIS
     Dosage: DOSAGE (TOTAL DAILY DOSE): 1 DF
     Route: 048
     Dates: start: 20190819
  4. PANTOPRAZOLE [Concomitant]
     Active Substance: PANTOPRAZOLE
     Dosage: DOSAGE (TOTAL DAILY DOSE): 40 MG
     Route: 048
     Dates: start: 20180819
  5. AZITHROMYCIN ANHYDROUS. [Concomitant]
     Active Substance: AZITHROMYCIN ANHYDROUS
     Dosage: DOSAGE (TOTAL DAILY DOSE): 500 MG
     Route: 048
     Dates: start: 20191210, end: 20191215
  6. LENALIDOMIDE [Suspect]
     Active Substance: LENALIDOMIDE
     Indication: PLASMA CELL MYELOMA
     Dosage: 25 MG, QD
     Route: 048
     Dates: start: 20191214, end: 20191214
  7. ISATUXIMAB [Suspect]
     Active Substance: ISATUXIMAB
     Indication: PLASMA CELL MYELOMA
     Dosage: 10 MG/KG, QOW
     Route: 042
     Dates: start: 20191210, end: 20191210
  8. ISATUXIMAB [Suspect]
     Active Substance: ISATUXIMAB
     Dosage: 10 MG/KG, QW
     Route: 042
     Dates: start: 20190819, end: 20190819
  9. BORTEZOMIB. [Suspect]
     Active Substance: BORTEZOMIB
     Indication: PLASMA CELL MYELOMA
     Dosage: 1 G/M2, QW
     Route: 058
     Dates: start: 20191210, end: 20191210
  10. ARANESP [Concomitant]
     Active Substance: DARBEPOETIN ALFA
     Dosage: DOSAGE (TOTAL DAILY DOSE): 300 UG
     Route: 058
     Dates: start: 20191202, end: 20191202
  11. ARANESP [Concomitant]
     Active Substance: DARBEPOETIN ALFA
     Dosage: DOSAGE (TOTAL DAILY DOSE): 300 UG
     Route: 058
     Dates: start: 20191210, end: 20191210
  12. LENALIDOMIDE [Suspect]
     Active Substance: LENALIDOMIDE
     Dosage: 25 MG, QD
     Route: 048
     Dates: start: 20190819, end: 20190819
  13. DEXAMETHASONE. [Suspect]
     Active Substance: DEXAMETHASONE
     Dosage: 20 MG, D1, D4, D8, D11, D15, D22, D25, D29, D32
     Route: 048
     Dates: start: 20190819, end: 20190819
  14. BORTEZOMIB. [Suspect]
     Active Substance: BORTEZOMIB
     Dosage: 1.3 G/M2, OTHER, D1, D4, D8, D11, D22, D25, D29, D32
     Route: 058
     Dates: start: 20190819, end: 20190819
  15. ATORVASTATINE [ATORVASTATIN] [Concomitant]
     Active Substance: ATORVASTATIN
     Dosage: DOSAGE (TOTAL DAILY DOSE): 20 MG
     Route: 048
     Dates: start: 2018
  16. FUROSEMIDE. [Concomitant]
     Active Substance: FUROSEMIDE
     Dosage: DOSAGE (TOTAL DAILY DOSE): 40 MG
     Route: 048
     Dates: start: 20191210, end: 20191215

REACTIONS (3)
  - Pulmonary embolism [Recovered/Resolved]
  - Vena cava thrombosis [Recovered/Resolved]
  - Peripheral artery thrombosis [Recovered/Resolved]

NARRATIVE: CASE EVENT DATE: 20191215
